FAERS Safety Report 9407572 (Version 3)
Quarter: 2013Q3

REPORT INFORMATION
  Report Type: Spontaneous
  Country: US (occurrence: US)
  Receive Date: 20130718
  Receipt Date: 20130813
  Transmission Date: 20140515
  Serious: No
  Sender: FDA-Public Use
  Company Number: US-PFIZER INC-2013206473

PATIENT
  Age: 14 Year
  Sex: Male

DRUGS (1)
  1. XYNTHA [Suspect]
     Indication: FACTOR VIII DEFICIENCY
     Dosage: UNK
     Dates: start: 2009

REACTIONS (2)
  - Tooth disorder [Unknown]
  - Joint injury [Unknown]
